FAERS Safety Report 11177522 (Version 4)
Quarter: 2015Q3

REPORT INFORMATION
  Report Type: Spontaneous
  Country: US (occurrence: US)
  Receive Date: 20150610
  Receipt Date: 20150703
  Transmission Date: 20151125
  Serious: Yes (Hospitalization)
  Sender: FDA-Public Use
  Company Number: US-JAZZ-2015-US-008430

PATIENT
  Age: 57 Year
  Sex: Male

DRUGS (19)
  1. PRIALT [Suspect]
     Active Substance: ZICONOTIDE ACETATE
     Indication: BACK PAIN
     Dosage: UNK ?G, QH
     Route: 037
  2. OXYCODONE HCL [Concomitant]
     Active Substance: OXYCODONE HYDROCHLORIDE
     Indication: PAIN
  3. PRIALT [Suspect]
     Active Substance: ZICONOTIDE ACETATE
     Indication: POST LAMINECTOMY SYNDROME
     Dosage: UNK ?G, QH
     Route: 037
     Dates: end: 20150602
  4. ZYRTEC [Concomitant]
     Active Substance: CETIRIZINE HYDROCHLORIDE
     Dosage: 10 MG, QD AS NEEDED
     Route: 048
  5. PRIALT [Suspect]
     Active Substance: ZICONOTIDE ACETATE
     Indication: PAIN
     Dosage: 0.167 ?G, QH
     Route: 037
     Dates: start: 20150602
  6. DILAUDID [Suspect]
     Active Substance: HYDROMORPHONE HYDROCHLORIDE
     Indication: PAIN
     Dosage: .007 MG, QH
     Route: 037
     Dates: start: 20150602
  7. DILAUDID [Suspect]
     Active Substance: HYDROMORPHONE HYDROCHLORIDE
     Indication: BACK PAIN
  8. FENTANYL. [Suspect]
     Active Substance: FENTANYL
     Indication: BACK PAIN
  9. OXYCODONE HCL [Concomitant]
     Active Substance: OXYCODONE HYDROCHLORIDE
     Indication: PAIN
     Dosage: 15 MG, QID AS NEEDED
     Route: 048
  10. DILAUDID [Suspect]
     Active Substance: HYDROMORPHONE HYDROCHLORIDE
     Indication: POST LAMINECTOMY SYNDROME
     Dosage: UNK MG, QD
     Route: 037
     Dates: end: 20150602
  11. FENTANYL. [Suspect]
     Active Substance: FENTANYL
     Indication: POST LAMINECTOMY SYNDROME
     Dosage: UNK ?G, QH
     Route: 037
  12. FENTANYL. [Suspect]
     Active Substance: FENTANYL
     Indication: PAIN
  13. NEURONTIN [Concomitant]
     Active Substance: GABAPENTIN
     Indication: PAIN
     Dosage: 300 MG, BID
  14. NEURONTIN [Concomitant]
     Active Substance: GABAPENTIN
     Indication: POST LAMINECTOMY SYNDROME
  15. METFORMIN [Concomitant]
     Active Substance: METFORMIN HYDROCHLORIDE
     Indication: DIABETES MELLITUS
     Dosage: 1000 MG, BID
     Route: 048
  16. GLYBURIDE. [Concomitant]
     Active Substance: GLYBURIDE
     Indication: DIABETES MELLITUS
     Dosage: 5 MG, BID
     Route: 048
  17. OXYCODONE HCL [Concomitant]
     Active Substance: OXYCODONE HYDROCHLORIDE
     Indication: POST LAMINECTOMY SYNDROME
     Dosage: 10 MG, QID AS NEEDED
     Route: 048
  18. LANTUS [Concomitant]
     Active Substance: INSULIN GLARGINE
     Indication: DIABETES MELLITUS
     Dosage: 56 USP UNIT, QD
     Route: 058
  19. LISINOPRIL. [Concomitant]
     Active Substance: LISINOPRIL
     Indication: HYPERTENSION
     Dosage: 5 MG, BID
     Route: 048

REACTIONS (9)
  - Hyperhidrosis [Unknown]
  - Agitation [Recovering/Resolving]
  - Myoclonus [Recovering/Resolving]
  - Tremor [Recovering/Resolving]
  - Drug withdrawal syndrome [Recovering/Resolving]
  - Device issue [Unknown]
  - Mental status changes [Recovering/Resolving]
  - Hallucination, visual [Recovering/Resolving]
  - Delirium [Recovering/Resolving]

NARRATIVE: CASE EVENT DATE: 201505
